FAERS Safety Report 9901408 (Version 2)
Quarter: 2014Q2

REPORT INFORMATION
  Report Type: Spontaneous
  Country: GB (occurrence: GB)
  Receive Date: 20140217
  Receipt Date: 20140401
  Transmission Date: 20141212
  Serious: Yes (Hospitalization)
  Sender: FDA-Public Use
  Company Number: GB-NOVOPROD-399882

PATIENT
  Age: 74 Year
  Sex: Male
  Weight: 66 kg

DRUGS (17)
  1. NOVOMIX 30 [Suspect]
     Indication: DIABETES MELLITUS
     Dosage: 120
     Route: 058
     Dates: start: 20130331
  2. AMLODIPINE [Concomitant]
     Dosage: UNK
     Route: 065
  3. ASPIRIN [Concomitant]
     Dosage: UNK
     Route: 065
  4. ATORVASTATIN [Concomitant]
     Dosage: UNK
     Route: 065
  5. BISOPROLOL [Concomitant]
     Dosage: UNK
     Route: 065
  6. CALCICHEW [Concomitant]
     Dosage: UNK
     Route: 065
  7. DORZOLAMIDE [Concomitant]
     Dosage: UNK
     Route: 065
  8. DOXAZOSIN [Concomitant]
     Dosage: UNK
     Route: 065
  9. FERROUS SULPHATE                   /00023503/ [Concomitant]
     Dosage: UNK
     Route: 065
  10. FUROSEMIDE [Concomitant]
     Dosage: UNK
     Route: 065
  11. METFORMIN [Concomitant]
     Dosage: UNK
     Route: 065
  12. OMEPRAZOLE [Concomitant]
     Dosage: UNK
     Route: 065
  13. RAMIPRIL [Concomitant]
     Dosage: UNK
     Route: 065
  14. SENNA                              /00142201/ [Concomitant]
     Dosage: UNK
     Route: 065
  15. SODIUM BICARBONATE [Concomitant]
     Dosage: UNK
     Route: 065
  16. TADALAFIL [Concomitant]
     Dosage: UNK
     Route: 065
  17. TAMSULOSIN [Concomitant]
     Dosage: UNK
     Route: 065

REACTIONS (3)
  - Product colour issue [Unknown]
  - Chills [Recovered/Resolved]
  - Pyrexia [Recovered/Resolved]
